FAERS Safety Report 4636474-0 (Version None)
Quarter: 2005Q2

REPORT INFORMATION
  Report Type: 
  Country: None (occurrence: None)
  Receive Date: 20050415
  Receipt Date: 20050406
  Transmission Date: 20051028
  Serious: Yes (Hospitalization)
  Sender: FDA-Public Use
  Company Number: JP-ROCHE-401679

PATIENT
  Age: 74 Year
  Sex: Male

DRUGS (8)
  1. TAMIFLU [Suspect]
     Route: 048
     Dates: start: 20050222, end: 20050226
  2. UBIDECARENONE [Concomitant]
     Dosage: TRADE NAME: SORANEKINON
     Route: 048
     Dates: start: 19980128
  3. NICERGOLINE [Concomitant]
     Dosage: TRADE NAME: SALUMOSIN.
     Route: 048
     Dates: start: 19980128
  4. MARZULENE S [Concomitant]
     Route: 048
     Dates: start: 19980128
  5. SELBEX [Concomitant]
     Dosage: FORM: ORAL (NOS)
     Route: 048
     Dates: start: 19980128
  6. GANATON [Concomitant]
     Route: 048
     Dates: start: 19980128
  7. LAXOBERON [Concomitant]
     Route: 048
     Dates: start: 19980128
  8. MAGNESIUM OXIDE [Concomitant]
     Dosage: FORM: ORAL (NOS).
     Route: 048
     Dates: start: 19980128

REACTIONS (1)
  - THROMBOCYTOPENIA [None]
